FAERS Safety Report 4493237-7 (Version None)
Quarter: 2004Q4

REPORT INFORMATION
  Report Type: 
  Country: None (occurrence: None)
  Receive Date: 20041028
  Receipt Date: 20041012
  Transmission Date: 20050328
  Serious: Yes (Hospitalization)
  Sender: FDA-Public Use
  Company Number: 601452

PATIENT
  Age: 9 Day
  Sex: Male
  Weight: 2.7 kg

DRUGS (8)
  1. TISSEEL VH KIT [Suspect]
     Indication: CRANIOPHARYNGIOMA
     Dosage: ONCE; INTRAMENINGEAL
     Route: 029
     Dates: start: 20040729, end: 20040729
  2. FENTANYL [Concomitant]
  3. CEFOTAXIME [Concomitant]
  4. MORPHINE SULFATE [Concomitant]
  5. CALCIUM [Concomitant]
  6. MANNITOL [Concomitant]
  7. LASIX [Concomitant]
  8. DECADRON [Concomitant]

REACTIONS (9)
  - ANAPHYLACTIC REACTION [None]
  - BLOOD IMMUNOGLOBULIN E INCREASED [None]
  - BRAIN OEDEMA [None]
  - CEREBRAL INFARCTION [None]
  - HYPOVENTILATION [None]
  - INTRACRANIAL PRESSURE INCREASED [None]
  - INTRAVENTRICULAR HAEMORRHAGE NEONATAL [None]
  - NEONATAL DISORDER [None]
  - OXYGEN SATURATION DECREASED [None]
